FAERS Safety Report 7475340-2 (Version None)
Quarter: 2011Q2

REPORT INFORMATION
  Report Type: 
  Country: None (occurrence: None)
  Receive Date: 20110512
  Receipt Date: 20110504
  Transmission Date: 20111010
  Serious: Yes (Other)
  Sender: FDA-Public Use
  Company Number: DK-CELGENEUS-044-FK228-11023030

PATIENT
  Sex: Male
  Weight: 120 kg

DRUGS (4)
  1. FUROSEMIDE [Concomitant]
     Indication: OEDEMA
     Dosage: 160 MILLIGRAM
     Route: 065
  2. BETNOVAT [Concomitant]
     Indication: MYCOSIS FUNGOIDES REFRACTORY
     Dosage: 1-2 APPLICATIONS
     Route: 065
  3. KALIUM CHLORIDE [Concomitant]
     Indication: SUPPORTIVE CARE
     Dosage: 3000 MILLIGRAM
     Route: 065
  4. ISTODAX [Suspect]
     Indication: MYCOSIS FUNGOIDES REFRACTORY
     Dosage: 14 MILLIGRAM/SQ. METER
     Route: 051
     Dates: start: 20101221

REACTIONS (2)
  - DEEP VEIN THROMBOSIS [None]
  - FATIGUE [None]
